FAERS Safety Report 4616925-8 (Version None)
Quarter: 2005Q1

REPORT INFORMATION
  Report Type: 
  Country: None (occurrence: None)
  Receive Date: 20050321
  Receipt Date: 20050308
  Transmission Date: 20050727
  Serious: Yes (Other)
  Sender: FDA-Public Use
  Company Number: 2004242732CH

PATIENT
  Age: 33 Year
  Sex: Female
  Weight: 63 kg

DRUGS (3)
  1. TOLTERODINE TARTRATE [Suspect]
     Indication: URINARY INCONTINENCE
     Dosage: 4 MG (1 IN 1 D), ORAL
     Route: 048
     Dates: start: 20040701, end: 20040913
  2. FLAVOXATE HYDROCHLORIDE (FLAVOXATE HYDROCHLORIDE) [Suspect]
     Indication: URINARY INCONTINENCE
     Dosage: (1 IN 1 D), ORAL
     Route: 048
     Dates: start: 20040401, end: 20040913
  3. FLAVOXATE HYDROCHLORIDE (FLAVOXATE HYDROCHLORIDE) [Suspect]
     Indication: URINARY INCONTINENCE
     Dosage: (1 IN 1 D), ORAL
     Route: 048
     Dates: start: 20041203

REACTIONS (7)
  - ASTHENIA [None]
  - CHROMATURIA [None]
  - FATIGUE [None]
  - HEPATOMEGALY [None]
  - JAUNDICE [None]
  - LIVER FUNCTION TEST ABNORMAL [None]
  - OEDEMA DUE TO HEPATIC DISEASE [None]
